FAERS Safety Report 18601232 (Version 2)
Quarter: 2021Q4

REPORT INFORMATION
  Report Type: Spontaneous
  Country: US (occurrence: US)
  Receive Date: 20201210
  Receipt Date: 20211208
  Transmission Date: 20220303
  Serious: Yes (Other)
  Sender: FDA-Public Use
  Company Number: US-AMERICAN REGENT INC-2020001857

PATIENT
  Age: 46 Year
  Sex: Female

DRUGS (2)
  1. VENOFER [Suspect]
     Active Substance: IRON SUCROSE
     Indication: Product used for unknown indication
     Dosage: UNK UNK, SINGLE
     Route: 042
     Dates: start: 20200902, end: 20200902
  2. BENADRYL                           /00000402/ [Concomitant]
     Indication: Premedication
     Dosage: UNK UNK, SINGLE
     Route: 065
     Dates: start: 20200902, end: 20200902

REACTIONS (2)
  - Anaphylactic reaction [Unknown]
  - Migraine [Unknown]

NARRATIVE: CASE EVENT DATE: 20200901
